FAERS Safety Report 17643531 (Version 1)
Quarter: 2020Q2

REPORT INFORMATION
  Report Type: Spontaneous
  Country: US (occurrence: US)
  Receive Date: 20200407
  Receipt Date: 20200407
  Transmission Date: 20200713
  Serious: Yes (Other)
  Sender: FDA-Public Use
  Company Number: None

PATIENT
  Age: 15 Year
  Sex: Male

DRUGS (1)
  1. TRIKAFTA [Suspect]
     Active Substance: ELEXACAFTOR\IVACAFTOR\TEZACAFTOR
     Indication: CYSTIC FIBROSIS
     Dosage: ?          OTHER DOSE:2 TABS MORNING;OTHER FREQUENCY:1 TAB EVENING ;?
     Route: 048
     Dates: start: 20200405

REACTIONS (3)
  - Rhinorrhoea [None]
  - Nasal congestion [None]
  - Pain in jaw [None]

NARRATIVE: CASE EVENT DATE: 20200407
